FAERS Safety Report 5057310-7 (Version None)
Quarter: 2006Q3

REPORT INFORMATION
  Report Type: 
  Country: None (occurrence: None)
  Receive Date: 20060721
  Receipt Date: 20050729
  Transmission Date: 20061208
  Serious: No
  Sender: FDA-Public Use
  Company Number: US-GLAXOSMITHKLINE-A0568285A

PATIENT
  Age: 52 Year
  Sex: Female

DRUGS (5)
  1. AVANDIA [Suspect]
     Route: 048
  2. FLONASE [Suspect]
     Indication: DRUG USE FOR UNKNOWN INDICATION
     Route: 045
  3. LISINOPRIL [Concomitant]
  4. CLONIDINE [Concomitant]
  5. PREMARIN [Concomitant]

REACTIONS (4)
  - FATIGUE [None]
  - OEDEMA PERIPHERAL [None]
  - PRURITUS [None]
  - STOMACH DISCOMFORT [None]
